FAERS Safety Report 14597396 (Version 1)
Quarter: 2018Q1

REPORT INFORMATION
  Report Type: Report from Study
  Country: None (occurrence: FR)
  Receive Date: 20180305
  Receipt Date: 20180305
  Transmission Date: 20180509
  Serious: Yes (Other)
  Sender: FDA-Public Use
  Company Number: FR-ABBVIE-18K-056-2271265-00

PATIENT
  Age: 25 Year
  Sex: Female

DRUGS (1)
  1. HUMIRA [Suspect]
     Active Substance: ADALIMUMAB
     Indication: ANKYLOSING SPONDYLITIS
     Route: 058
     Dates: start: 20180210

REACTIONS (5)
  - Fatigue [Unknown]
  - Malaise [Unknown]
  - Hot flush [Unknown]
  - Dizziness [Unknown]
  - Tetany [Unknown]

NARRATIVE: CASE EVENT DATE: 20180210
